FAERS Safety Report 8356799-5 (Version None)
Quarter: 2012Q2

REPORT INFORMATION
  Report Type: 
  Country: None (occurrence: None)
  Receive Date: 20120511
  Receipt Date: 20120511
  Transmission Date: 20120825
  Serious: No
  Sender: FDA-Public Use
  Company Number: None

PATIENT
  Sex: Male

DRUGS (2)
  1. ENBREL [Suspect]
     Dosage: 25MG TWICE A WEEK SUBQ
     Route: 058
     Dates: start: 20120217, end: 20120509
  2. ENBREL [Suspect]
     Dosage: 50MG WEEKLY SUBQ
     Route: 058

REACTIONS (3)
  - INJECTION SITE PAIN [None]
  - INJECTION SITE PRURITUS [None]
  - INJECTION SITE SWELLING [None]
